FAERS Safety Report 14120856 (Version 4)
Quarter: 2018Q2

REPORT INFORMATION
  Report Type: Report from Study
  Country: GB (occurrence: GB)
  Receive Date: 20171024
  Receipt Date: 20180409
  Transmission Date: 20180711
  Serious: Yes (Hospitalization, Other)
  Sender: FDA-Public Use
  Company Number: GB-UCBSA-2017041954

PATIENT
  Age: 40 Year
  Sex: Male

DRUGS (6)
  1. PERAMPANEL [Concomitant]
     Active Substance: PERAMPANEL
     Indication: EPILEPSY
     Dosage: 12 MG, ONCE DAILY (QD)
     Route: 048
     Dates: start: 20131219
  2. FERROUS FUMARATE [Concomitant]
     Active Substance: FERROUS FUMARATE
     Indication: ANAEMIA
     Dosage: 210 MG, ONCE DAILY (QD)
     Route: 048
  3. OXCARBAZEPINE. [Concomitant]
     Active Substance: OXCARBAZEPINE
     Indication: EPILEPSY
     Dosage: 900 MG, 2X/DAY (BID)
     Route: 048
     Dates: start: 20150806
  4. SALBUTAMOL [Concomitant]
     Active Substance: ALBUTEROL
     Indication: ASTHMA
     Dosage: 100 ?G, AS NEEDED (PRN) QDS INHALED
  5. BECLOMETHASONE [Concomitant]
     Active Substance: BECLOMETHASONE
     Indication: ASTHMA
     Dosage: 200 ?G, 2X/DAY (BID) INHALED
  6. BRIVARACETAM [Suspect]
     Active Substance: BRIVARACETAM
     Indication: EPILEPSY
     Dosage: 100 MG, 2X/DAY (BID)
     Route: 048
     Dates: start: 20170428

REACTIONS (6)
  - Epilepsy [Recovered/Resolved]
  - Headache [Not Recovered/Not Resolved]
  - Soft tissue injury [Unknown]
  - Partial seizures [Recovered/Resolved]
  - Head injury [Unknown]
  - Generalised tonic-clonic seizure [Recovered/Resolved]

NARRATIVE: CASE EVENT DATE: 2017
